FAERS Safety Report 18265581 (Version 1)
Quarter: 2020Q3

REPORT INFORMATION
  Report Type: Spontaneous
  Country: US (occurrence: US)
  Receive Date: 20200914
  Receipt Date: 20200914
  Transmission Date: 20201103
  Serious: Yes (Hospitalization, Other)
  Sender: FDA-Public Use
  Company Number: US-BAXTER-2020BAX018391

PATIENT
  Age: 34 Year
  Sex: Female

DRUGS (4)
  1. LIDOCAINE HYDROCHLORIDE AND 5% DEXTROSE INJECTION, USP [Suspect]
     Active Substance: LIDOCAINE HYDROCHLORIDE
     Indication: PAIN MANAGEMENT
     Dosage: LIDOCAINE DRIP
     Route: 065
  2. KETAMINE [Suspect]
     Active Substance: KETAMINE
     Indication: PAIN
     Dosage: DRIP
     Route: 065
  3. CARBAMAZEPINE. [Concomitant]
     Active Substance: CARBAMAZEPINE
     Indication: PAIN
     Route: 048
  4. LEVETIRACETAM. [Concomitant]
     Active Substance: LEVETIRACETAM
     Indication: PAIN
     Route: 048

REACTIONS (1)
  - Hallucination [Unknown]
